FAERS Safety Report 9026482 (Version 1)
Quarter: 2013Q1

REPORT INFORMATION
  Report Type: Spontaneous
  Country: DE (occurrence: None)
  Receive Date: 20130107
  Receipt Date: 20130107
  Transmission Date: 20140127
  Serious: Yes (Other)
  Sender: FDA-Public Use
  Company Number: DSA_61722_2013

PATIENT
  Age: 49 Year
  Sex: Male

DRUGS (2)
  1. FLUOROURACIL (FLUOROURACIL) [Suspect]
     Indication: RECTAL CANCER
  2. THERAPEUTIC RADIOPHARMACEUTICALS [Concomitant]

REACTIONS (3)
  - Cardiotoxicity [None]
  - Angina pectoris [None]
  - Bundle branch block left [None]
